FAERS Safety Report 5472553-6 (Version None)
Quarter: 2007Q3

REPORT INFORMATION
  Report Type: 
  Country: None (occurrence: None)
  Receive Date: 20070927
  Receipt Date: 20070917
  Transmission Date: 20080115
  Serious: Yes (Death)
  Sender: FDA-Public Use
  Company Number: B0488515A

PATIENT

DRUGS (2)
  1. TOPOTECAN HYDROCHLORIDE (FORMULATION UNKNOWN) GENERIC (TOPOTECAN) [Suspect]
     Indication: OVARIAN CANCER
     Dosage: 2.5 MG/M2/CYCLIC
  2. GEMZAR [Suspect]
     Indication: OVARIAN CANCER
     Dosage: 1000 MG/M2/CYCLIC

REACTIONS (2)
  - LUNG DISORDER [None]
  - NEUTROPENIA [None]
